FAERS Safety Report 22015652 (Version 1)
Quarter: 2023Q1

REPORT INFORMATION
  Report Type: Spontaneous
  Country: US (occurrence: US)
  Receive Date: 20230221
  Receipt Date: 20230221
  Transmission Date: 20230418
  Serious: No
  Sender: FDA-Public Use
  Company Number: US-SA-SAC20230217000991

PATIENT
  Age: 24 Year
  Sex: Female

DRUGS (1)
  1. DUPIXENT [Suspect]
     Active Substance: DUPILUMAB
     Indication: Dermatitis atopic
     Dosage: 300 MG;FREQUENCY : OTHER
     Route: 058
     Dates: start: 202210, end: 20230211

REACTIONS (2)
  - COVID-19 [Unknown]
  - Blister [Unknown]

NARRATIVE: CASE EVENT DATE: 20230101
